FAERS Safety Report 18468793 (Version 2)
Quarter: 2020Q4

REPORT INFORMATION
  Report Type: Spontaneous
  Country: CH (occurrence: CH)
  Receive Date: 20201105
  Receipt Date: 20201216
  Transmission Date: 20210114
  Serious: Yes (Hospitalization)
  Sender: FDA-Public Use
  Company Number: CH-EISAI MEDICAL RESEARCH-EC-2020-083287

PATIENT
  Age: 86 Year
  Sex: Female

DRUGS (9)
  1. SERESTA [Suspect]
     Active Substance: OXAZEPAM
     Indication: COGNITIVE DISORDER
     Route: 048
  2. METFORMIN [Concomitant]
     Active Substance: METFORMIN HYDROCHLORIDE
     Indication: PRODUCT USED FOR UNKNOWN INDICATION
     Dosage: DOSE UNKNOWN, ONCE A DAY
     Route: 065
  3. DIAMICRON MR [Concomitant]
     Active Substance: GLICLAZIDE
     Indication: PRODUCT USED FOR UNKNOWN INDICATION
     Dosage: DOSE UNKNOWN, ONCE A DAY
     Route: 065
     Dates: end: 20200918
  4. SERESTA [Suspect]
     Active Substance: OXAZEPAM
     Indication: VASCULAR ENCEPHALOPATHY
     Dosage: DOSE UNKNOWN (PROBABLY OVER-INTAKE/OVERDOSE)
     Route: 048
     Dates: end: 2020
  5. ARICEPT [Suspect]
     Active Substance: DONEPEZIL HYDROCHLORIDE
     Indication: DEMENTIA ALZHEIMER^S TYPE
     Route: 048
     Dates: start: 202009, end: 20200918
  6. ASPIRIN CARDIO [Concomitant]
     Active Substance: ASPIRIN
     Indication: HYPERTENSION
     Route: 065
  7. SERESTA [Suspect]
     Active Substance: OXAZEPAM
     Route: 048
     Dates: start: 2020
  8. COVERAM [Concomitant]
     Active Substance: AMLODIPINE\PERINDOPRIL
     Indication: PRODUCT USED FOR UNKNOWN INDICATION
     Dosage: DOSE UNKNOWN, ONCE A DAY
     Route: 065
  9. ATORVA PFIZER [Concomitant]
     Active Substance: ATORVASTATIN
     Indication: PRODUCT USED FOR UNKNOWN INDICATION
     Dosage: DOSE UNKNOWN, ONCE A DAY
     Route: 065

REACTIONS (4)
  - Fall [Recovering/Resolving]
  - Gait disturbance [Recovering/Resolving]
  - Loss of consciousness [Recovered/Resolved]
  - Bradycardia [Recovering/Resolving]

NARRATIVE: CASE EVENT DATE: 2020
